FAERS Safety Report 9688060 (Version 1)
Quarter: 2013Q4

REPORT INFORMATION
  Report Type: Spontaneous
  Country: US (occurrence: US)
  Receive Date: 20131114
  Receipt Date: 20131114
  Transmission Date: 20140711
  Serious: No
  Sender: FDA-Public Use
  Company Number: US-PFIZER INC-2013322036

PATIENT
  Sex: Female

DRUGS (1)
  1. DEPO-PROVERA [Suspect]
     Dosage: 150 MG, UNK
     Dates: start: 20130911

REACTIONS (2)
  - Menorrhagia [Recovered/Resolved]
  - Alopecia [Not Recovered/Not Resolved]
